FAERS Safety Report 18124815 (Version 3)
Quarter: 2020Q3

REPORT INFORMATION
  Report Type: Report from Study
  Country: IT (occurrence: IT)
  Receive Date: 20200807
  Receipt Date: 20200927
  Transmission Date: 20201103
  Serious: Yes (Other)
  Sender: FDA-Public Use
  Company Number: IT-UCBSA-2020030640

PATIENT
  Age: 74 Year
  Sex: Female
  Weight: 63 kg

DRUGS (1)
  1. ROTIGOTINE [Suspect]
     Active Substance: ROTIGOTINE
     Indication: PRODUCT USED FOR UNKNOWN INDICATION
     Dosage: 8 MILLIGRAM, ONCE DAILY (QD)
     Route: 062
     Dates: start: 201710, end: 20200722

REACTIONS (1)
  - Pleurothotonus [Recovering/Resolving]

NARRATIVE: CASE EVENT DATE: 202002
